FAERS Safety Report 5502280-8 (Version None)
Quarter: 2007Q4

REPORT INFORMATION
  Report Type: 
  Country: None (occurrence: None)
  Receive Date: 20071026
  Receipt Date: 20071015
  Transmission Date: 20080405
  Serious: Yes (Death)
  Sender: FDA-Public Use
  Company Number: 2007S1000738

PATIENT
  Age: 7 Year
  Sex: Female
  Weight: 25 kg

DRUGS (8)
  1. AZATHIOPRINE [Suspect]
  2. KINERET [Suspect]
     Indication: VASCULITIS
     Dosage: 2.5 MG/KG; QD; SC
     Route: 058
     Dates: start: 20070414, end: 20070420
  3. PREDNISONE [Suspect]
     Dosage: PO
     Route: 048
     Dates: start: 20010620, end: 20020515
  4. CYCLOPHOSPHAMIDE [Suspect]
     Dosage: 800 MG; 1X ; IV
     Route: 042
     Dates: start: 20070427, end: 20070427
  5. METHYLPREDNISOLONE [Suspect]
     Dosage: 300 MG; IV
     Route: 042
     Dates: start: 20070503, end: 20070505
  6. ETANERCEPT (ETANERCEPT) [Suspect]
  7. METHOTREXATE [Suspect]
  8. CYCLOSPORINE [Suspect]
     Dosage: 1 1X
     Dates: start: 20070502, end: 20070504

REACTIONS (4)
  - HISTIOCYTOSIS HAEMATOPHAGIC [None]
  - IMMUNOSUPPRESSION [None]
  - INFECTION IN AN IMMUNOCOMPROMISED HOST [None]
  - PARVOVIRUS INFECTION [None]
